FAERS Safety Report 8421292-8 (Version None)
Quarter: 2012Q2

REPORT INFORMATION
  Report Type: 
  Country: None (occurrence: None)
  Receive Date: 20120608
  Receipt Date: 20120530
  Transmission Date: 20120825
  Serious: Yes (Hospitalization, Other)
  Sender: FDA-Public Use
  Company Number: JP-JNJFOC-20120515712

PATIENT
  Age: 81 Year
  Sex: Female

DRUGS (8)
  1. GALANTAMINE HYDROBROMIDE [Suspect]
     Route: 048
     Dates: start: 20120327, end: 20120514
  2. PRAVASTATIN SODIUM [Concomitant]
     Route: 048
  3. NICARDIPINE HCL [Concomitant]
     Route: 048
  4. LOXONIN [Concomitant]
     Route: 062
  5. ROCEPHIN [Concomitant]
     Indication: URINARY TRACT INFECTION
     Route: 042
     Dates: start: 20120516, end: 20120517
  6. LANSOPRAZOLE [Concomitant]
     Route: 048
  7. GALANTAMINE HYDROBROMIDE [Suspect]
     Indication: DEMENTIA
     Route: 048
     Dates: start: 20120228, end: 20120327
  8. PERSANTINE [Concomitant]
     Route: 048

REACTIONS (5)
  - BLOOD CALCIUM INCREASED [None]
  - GASTROENTERITIS VIRAL [None]
  - LOSS OF CONSCIOUSNESS [None]
  - BRADYCARDIA [None]
  - URINARY TRACT INFECTION [None]
